FAERS Safety Report 25701396 (Version 1)
Quarter: 2025Q3

REPORT INFORMATION
  Report Type: Spontaneous
  Country: MX (occurrence: MX)
  Receive Date: 20250819
  Receipt Date: 20250819
  Transmission Date: 20251020
  Serious: Yes (Other)
  Sender: AMGEN
  Company Number: MX-AMGEN-MEXSP2025161288

PATIENT
  Age: 61 Year
  Sex: Male

DRUGS (4)
  1. KYPROLIS [Suspect]
     Active Substance: CARFILZOMIB
     Indication: Plasma cell myeloma
     Route: 040
     Dates: start: 201901, end: 201907
  2. KYPROLIS [Suspect]
     Active Substance: CARFILZOMIB
     Route: 040
     Dates: start: 202301
  3. THALIDOMIDE [Concomitant]
     Active Substance: THALIDOMIDE
     Dosage: 50 MILLIGRAM, QD
     Route: 065
     Dates: start: 2019, end: 2021
  4. DEXAMETHASONE [Concomitant]
     Active Substance: DEXAMETHASONE
     Dosage: 18.7 MILLIGRAM, Q6H 0.2 MG, 0.4 MG, I MG, 2 MG, 4 MG, AND 10 MG AT ONE-HOUR INTERVALS
     Route: 048
     Dates: start: 202301

REACTIONS (9)
  - Ankle fracture [Unknown]
  - Neutropenia [Unknown]
  - Vasculitis [Recovered/Resolved]
  - Neuropathy peripheral [Unknown]
  - Plasma cell myeloma refractory [Unknown]
  - Drug intolerance [Unknown]
  - Weight decreased [Unknown]
  - Gait inability [Unknown]
  - Wound dehiscence [Unknown]

NARRATIVE: CASE EVENT DATE: 20190101
